FAERS Safety Report 9500723 (Version 3)
Quarter: 2013Q4

REPORT INFORMATION
  Report Type: Spontaneous
  Country: US (occurrence: None)
  Receive Date: 20130524
  Receipt Date: 20131226
  Transmission Date: 20140711
  Serious: Yes (Other)
  Sender: FDA-Public Use
  Company Number: PHEH2012US020443

PATIENT
  Age: 27 Year
  Sex: Female
  Weight: 77.1 kg

DRUGS (1)
  1. GILENYA [Suspect]
     Indication: MULTIPLE SCLEROSIS
     Route: 048
     Dates: start: 20111117, end: 20121022

REACTIONS (6)
  - Road traffic accident [None]
  - Fatigue [None]
  - Pain [None]
  - Mobility decreased [None]
  - Visual acuity reduced [None]
  - Hypertension [None]
